FAERS Safety Report 8993989 (Version 3)
Quarter: 2014Q1

REPORT INFORMATION
  Report Type: Spontaneous
  Country: US (occurrence: US)
  Receive Date: 20130102
  Receipt Date: 20140205
  Transmission Date: 20141002
  Serious: Yes (Other)
  Sender: FDA-Public Use
  Company Number: US-AMGEN-USASP2012082168

PATIENT
  Age: 56 Year
  Sex: Male
  Weight: 129 kg

DRUGS (9)
  1. ENBREL [Suspect]
     Indication: RHEUMATOID ARTHRITIS
     Dosage: 50 MG, QWK
     Route: 065
     Dates: start: 20121203
  2. ENBREL [Suspect]
     Dosage: UNK
     Route: 065
  3. ASPIRIN [Concomitant]
     Dosage: 325 MG, QD
     Route: 048
  4. ACETAMIDE [Concomitant]
     Dosage: 100 MG, BID
  5. METOPROLOL [Concomitant]
     Dosage: 100 MG, BID
     Route: 048
  6. SIMVASTATIN [Concomitant]
     Dosage: UNK UNK, QD
     Route: 048
  7. LASIX                              /00032601/ [Concomitant]
     Dosage: 20 MG, QD
     Route: 048
  8. TAGAMET                            /00397401/ [Concomitant]
     Dosage: 200 MG, BID
     Route: 048
  9. FLECAINIDE [Concomitant]
     Dosage: 100 MG, UNK
     Route: 048

REACTIONS (14)
  - Nephrolithiasis [Recovered/Resolved]
  - Dyspnoea [Not Recovered/Not Resolved]
  - Productive cough [Not Recovered/Not Resolved]
  - Sinus congestion [Not Recovered/Not Resolved]
  - Ear congestion [Not Recovered/Not Resolved]
  - Hair colour changes [Not Recovered/Not Resolved]
  - Rhinorrhoea [Not Recovered/Not Resolved]
  - Fatigue [Not Recovered/Not Resolved]
  - Wheezing [Not Recovered/Not Resolved]
  - Oropharyngeal pain [Recovered/Resolved]
  - Respiratory tract congestion [Not Recovered/Not Resolved]
  - Nasopharyngitis [Not Recovered/Not Resolved]
  - Lower respiratory tract infection [Not Recovered/Not Resolved]
  - Localised infection [Recovered/Resolved]
